FAERS Safety Report 4712048-8 (Version None)
Quarter: 2005Q3

REPORT INFORMATION
  Report Type: 
  Country: None (occurrence: None)
  Receive Date: 20050712
  Receipt Date: 20050630
  Transmission Date: 20060218
  Serious: Yes (Other)
  Sender: FDA-Public Use
  Company Number: TR-JNJFOC-20050700160

PATIENT
  Age: 37 Year
  Sex: Male
  Weight: 85 kg

DRUGS (3)
  1. RISPERDAL [Suspect]
     Indication: BIPOLAR DISORDER
     Dosage: 2MG TO 4MG/DAY
     Route: 049
  2. VALPROATE SODIUM [Concomitant]
     Indication: BIPOLAR DISORDER
  3. LITHIUM [Concomitant]
     Indication: BIPOLAR DISORDER

REACTIONS (2)
  - DIABETES MELLITUS INSULIN-DEPENDENT [None]
  - DIABETIC KETOACIDOSIS [None]
